FAERS Safety Report 7028395-3 (Version None)
Quarter: 2010Q4

REPORT INFORMATION
  Report Type: 
  Country: None (occurrence: None)
  Receive Date: 20101005
  Receipt Date: 20100923
  Transmission Date: 20110411
  Serious: Yes (Other)
  Sender: FDA-Public Use
  Company Number: ZA-PFIZER INC-2010120746

PATIENT
  Sex: Female

DRUGS (1)
  1. LYRICA [Suspect]
     Indication: PAIN
     Dosage: 75 MG, 1X/DAY
     Route: 048
     Dates: start: 20050101

REACTIONS (6)
  - DRUG INEFFECTIVE [None]
  - DYSKINESIA [None]
  - MOOD ALTERED [None]
  - NAUSEA [None]
  - TREMOR [None]
  - WITHDRAWAL SYNDROME [None]
